FAERS Safety Report 13987712 (Version 2)
Quarter: 2018Q1

REPORT INFORMATION
  Report Type: Spontaneous
  Country: FR (occurrence: FR)
  Receive Date: 20170919
  Receipt Date: 20180320
  Transmission Date: 20180508
  Serious: Yes (Other)
  Sender: FDA-Public Use
  Company Number: PHHY2017FR135880

PATIENT
  Age: 54 Year
  Sex: Female

DRUGS (5)
  1. OFLOXACIN. [Suspect]
     Active Substance: OFLOXACIN
     Indication: CHOLECYSTITIS
  2. OFLOXACIN. [Suspect]
     Active Substance: OFLOXACIN
     Indication: LOCALISED INFECTION
     Route: 065
  3. METRONIDAZOLE. [Suspect]
     Active Substance: METRONIDAZOLE
     Indication: CHOLECYSTITIS
     Route: 065
  4. METRONIDAZOLE. [Suspect]
     Active Substance: METRONIDAZOLE
     Indication: LOCALISED INFECTION
  5. CEFTRIAXONE. [Suspect]
     Active Substance: CEFTRIAXONE
     Indication: LOCALISED INFECTION
     Route: 065

REACTIONS (3)
  - Activated partial thromboplastin time prolonged [Recovered/Resolved]
  - Factor V inhibition [Recovered/Resolved]
  - Prothrombin time prolonged [Recovered/Resolved]
